FAERS Safety Report 18197651 (Version 3)
Quarter: 2020Q4

REPORT INFORMATION
  Report Type: Spontaneous
  Country: JP (occurrence: JP)
  Receive Date: 20200826
  Receipt Date: 20201015
  Transmission Date: 20210113
  Serious: Yes (Death, Other)
  Sender: FDA-Public Use
  Company Number: JP-009507513-2008JPN011608

PATIENT
  Age: 88 Year
  Sex: Female
  Weight: 48 kg

DRUGS (14)
  1. VENOGLOBULIN IH [Concomitant]
     Active Substance: HUMAN IMMUNOGLOBULIN G
     Indication: SEPSIS
     Dosage: 5 GRAM, QD
     Route: 041
     Dates: start: 20200813, end: 20200815
  2. OLMESARTAN MEDOXOMIL. [Concomitant]
     Active Substance: OLMESARTAN MEDOXOMIL
     Indication: HYPERTENSION
     Dosage: 1 DOSAGE FORM, QD
     Route: 048
     Dates: start: 20200807, end: 20200813
  3. FERROMIA [Concomitant]
     Active Substance: SODIUM FERROUS CITRATE
     Indication: IRON DEFICIENCY ANAEMIA
     Dosage: 2 DOSAGE FORM, Q12H
     Route: 048
     Dates: start: 20200807, end: 20200813
  4. RECOMODULIN [Concomitant]
     Active Substance: THROMBOMODULIN ALFA
     Indication: SEPSIS
     Dosage: 17920 UNITS, ONCE DAILY
     Route: 041
     Dates: start: 20200814, end: 20200815
  5. FIDAXOMICIN [Suspect]
     Active Substance: FIDAXOMICIN
     Indication: CLOSTRIDIUM DIFFICILE COLITIS
     Dosage: 200 MILLIGRAM, Q12H
     Route: 048
     Dates: start: 20200812, end: 20200814
  6. URSO [Concomitant]
     Active Substance: URSODIOL
     Indication: CHOLELITHIASIS
     Dosage: 1 DOSAGE FORM, Q8H
     Route: 048
     Dates: start: 20200807, end: 20200813
  7. NOREPINEPHRINE. [Concomitant]
     Active Substance: NOREPINEPHRINE
     Indication: SEPSIS
     Dosage: 0.075 UNIT UNKNOWN, IN 24 HOURS
     Route: 041
     Dates: start: 20200814, end: 20200816
  8. BAYCARON [Concomitant]
     Active Substance: MEFRUSIDE
     Indication: HYPERTENSION
     Dosage: 1 DOSAGE FORM, QD
     Route: 048
     Dates: start: 20200807, end: 20200813
  9. MEROPENEM. [Concomitant]
     Active Substance: MEROPENEM
     Indication: SEPSIS
     Dosage: 1 GRAM, Q8H
     Route: 041
     Dates: start: 20200814, end: 20200815
  10. MIYA-BM [Concomitant]
     Active Substance: CLOSTRIDIUM BUTYRICUM SPORES STRAIN M-55
     Indication: CLOSTRIDIUM DIFFICILE COLITIS
     Dosage: 2 DOSAGE FORM, Q8H
     Route: 048
     Dates: start: 20200807, end: 20200813
  11. ANAEMETRO [Concomitant]
     Active Substance: METRONIDAZOLE
     Indication: CLOSTRIDIUM DIFFICILE COLITIS
     Dosage: 500 MILLIGRAM, Q6H
     Route: 041
     Dates: start: 20200813, end: 20200816
  12. GASMOTIN [Concomitant]
     Active Substance: MOSAPRIDE CITRATE
     Indication: CHRONIC GASTRITIS
     Dosage: 1 DOSAGE FORM, Q8H
     Route: 048
     Dates: start: 20200807, end: 20200813
  13. VANCOMYCIN HYDROCHLORIDE. [Concomitant]
     Active Substance: VANCOMYCIN HYDROCHLORIDE
     Indication: CLOSTRIDIUM DIFFICILE COLITIS
     Dosage: 0.5 G, ONCE DAILY
     Route: 048
     Dates: start: 20200812, end: 20200812
  14. LASIX [Concomitant]
     Active Substance: FUROSEMIDE
     Indication: SEPSIS
     Dosage: 10 MILLIGRAM, QD
     Route: 041
     Dates: start: 20200814, end: 20200815

REACTIONS (1)
  - Renal failure [Fatal]

NARRATIVE: CASE EVENT DATE: 20200815
